FAERS Safety Report 19826865 (Version 3)
Quarter: 2022Q2

REPORT INFORMATION
  Report Type: Report from Study
  Country: HU (occurrence: HU)
  Receive Date: 20210913
  Receipt Date: 20220603
  Transmission Date: 20220721
  Serious: Yes (Life-Threatening, Other)
  Sender: FDA-Public Use
  Company Number: HU-SUN PHARMACEUTICAL INDUSTRIES LTD-2021R1-310690

PATIENT
  Age: 1 Day

DRUGS (2)
  1. DIGOXIN [Suspect]
     Active Substance: DIGOXIN
     Indication: Supraventricular tachycardia
     Dosage: UNK
     Route: 065
  2. DIGOXIN [Suspect]
     Active Substance: DIGOXIN
     Indication: Supraventricular tachycardia
     Dosage: 10 MCG/KG
     Route: 048

REACTIONS (5)
  - Arrhythmia [Unknown]
  - Electrocardiogram QRS complex prolonged [Unknown]
  - Ventricular fibrillation [Unknown]
  - Cardioversion [Unknown]
  - Multiple organ dysfunction syndrome [Unknown]
